FAERS Safety Report 6180722-5 (Version None)
Quarter: 2009Q2

REPORT INFORMATION
  Report Type: 
  Country: None (occurrence: None)
  Receive Date: 20090506
  Receipt Date: 20090421
  Transmission Date: 20091009
  Serious: Yes (Death, Hospitalization)
  Sender: FDA-Public Use
  Company Number: GB-ROCHE-628133

PATIENT
  Sex: Male

DRUGS (7)
  1. CAPECITABINE [Suspect]
     Dosage: ADMINISTERED ORALLY FOR 21 DAYS FOLLOWED BY A WEEKS REST.
     Route: 048
     Dates: start: 20081216, end: 20090103
  2. BEVACIZUMAB [Suspect]
     Route: 042
     Dates: start: 20081216, end: 20090103
  3. ERLOTINIB [Suspect]
     Route: 048
     Dates: start: 20081216, end: 20090103
  4. GEMCITABINE [Suspect]
     Dosage: ADMINISTERED WEEKELY FOR THREE WEEKS FOLLOWED BY A ONE WEEK REST
     Route: 042
     Dates: start: 20081216, end: 20090103
  5. ONDANSETRON [Concomitant]
  6. LEVOMEPROMAZINE [Concomitant]
  7. LANSOPRAZOLE [Concomitant]

REACTIONS (2)
  - CONSTIPATION [None]
  - INTESTINAL OBSTRUCTION [None]
